FAERS Safety Report 23399822 (Version 2)
Quarter: 2024Q2

REPORT INFORMATION
  Report Type: Spontaneous
  Country: FR (occurrence: FR)
  Receive Date: 20240114
  Receipt Date: 20240413
  Transmission Date: 20240716
  Serious: Yes (Death, Life-Threatening, Other)
  Sender: FDA-Public Use
  Company Number: FR-AMGEN-FRASP2024006279

PATIENT

DRUGS (2)
  1. BLINATUMOMAB [Suspect]
     Active Substance: BLINATUMOMAB
     Indication: B-cell type acute leukaemia
     Dosage: 28 MICROGRAM, QD (3-5 CYCLES)
     Route: 065
  2. BLINATUMOMAB [Suspect]
     Active Substance: BLINATUMOMAB
     Dosage: UNK (9-28 MICROGRAM, QD 3-5 CYCLES)
     Route: 065

REACTIONS (13)
  - Immune effector cell-associated neurotoxicity syndrome [Fatal]
  - Cytokine release syndrome [Fatal]
  - Infection [Fatal]
  - Hypoxia [Unknown]
  - Hypotension [Unknown]
  - Pyrexia [Unknown]
  - Haematotoxicity [Unknown]
  - B-cell type acute leukaemia [Unknown]
  - Sepsis [Unknown]
  - Bacteraemia [Unknown]
  - Neurotoxicity [Unknown]
  - Off label use [Unknown]
  - Adverse event [Unknown]
